FAERS Safety Report 14507883 (Version 1)
Quarter: 2018Q1

REPORT INFORMATION
  Report Type: Spontaneous
  Country: ES (occurrence: ES)
  Receive Date: 20180208
  Receipt Date: 20180208
  Transmission Date: 20180509
  Serious: Yes (Other)
  Sender: FDA-Public Use
  Company Number: ES-ASTRAZENECA-2018SE15393

PATIENT
  Age: 79 Year
  Sex: Male

DRUGS (9)
  1. METOCLOPRAMIDE. [Concomitant]
     Active Substance: METOCLOPRAMIDE
  2. TAZOBACTAM [Suspect]
     Active Substance: TAZOBACTAM
     Indication: ANTIBIOTIC PROPHYLAXIS
     Route: 065
     Dates: start: 20171221, end: 20171225
  3. DOMPERIDONE [Concomitant]
     Active Substance: DOMPERIDONE
  4. VANCOMYCIN [Concomitant]
     Active Substance: VANCOMYCIN
  5. CEFAZOLIN [Concomitant]
     Active Substance: CEFAZOLIN
  6. OMEPRAZOLE. [Suspect]
     Active Substance: OMEPRAZOLE
     Indication: PROPHYLAXIS AGAINST GASTROINTESTINAL ULCER
     Route: 048
     Dates: start: 20171221, end: 20171225
  7. AMIODARONE [Suspect]
     Active Substance: AMIODARONE
     Route: 065
     Dates: start: 20171219, end: 20180112
  8. FUROSEMIDE. [Concomitant]
     Active Substance: FUROSEMIDE
  9. LINEZOLID. [Suspect]
     Active Substance: LINEZOLID
     Indication: ANTIBIOTIC PROPHYLAXIS
     Route: 065
     Dates: start: 20171221, end: 20180125

REACTIONS (5)
  - Anaemia [Not Recovered/Not Resolved]
  - Hypertransaminasaemia [Recovered/Resolved]
  - Spontaneous haematoma [Recovering/Resolving]
  - Platelet count decreased [Not Recovered/Not Resolved]
  - Leukopenia [Recovered/Resolved]

NARRATIVE: CASE EVENT DATE: 20171224
